FAERS Safety Report 20630424 (Version 1)
Quarter: 2022Q1

REPORT INFORMATION
  Report Type: Spontaneous
  Country: BE (occurrence: BE)
  Receive Date: 20220324
  Receipt Date: 20220324
  Transmission Date: 20220424
  Serious: Yes (Other)
  Sender: FDA-Public Use
  Company Number: BE-SA-SAC20220318000346

PATIENT
  Age: 53 Year
  Sex: Male

DRUGS (3)
  1. LEMTRADA [Suspect]
     Active Substance: ALEMTUZUMAB
     Indication: Multiple sclerosis
     Dosage: UNK
     Dates: start: 202003, end: 202003
  2. GILENYA [Concomitant]
     Active Substance: FINGOLIMOD HYDROCHLORIDE
  3. COVID-19 VACCINE [Concomitant]

REACTIONS (2)
  - Meningioma [Unknown]
  - Meningioma surgery [Unknown]

NARRATIVE: CASE EVENT DATE: 20210801
